FAERS Safety Report 20350167 (Version 1)
Quarter: 2022Q1

REPORT INFORMATION
  Report Type: Spontaneous
  Country: US (occurrence: US)
  Receive Date: 20220119
  Receipt Date: 20220119
  Transmission Date: 20220424
  Serious: Yes (Other)
  Sender: FDA-Public Use
  Company Number: US-MYLANLABS-2022M1004177

PATIENT
  Age: 53 Year
  Sex: Female

DRUGS (2)
  1. ACARBOSE [Suspect]
     Active Substance: ACARBOSE
     Indication: Dumping syndrome
     Dosage: UNK
     Route: 065
  2. OCTREOTIDE [Suspect]
     Active Substance: OCTREOTIDE
     Indication: Dumping syndrome
     Dosage: 25 MILLIGRAM, 3 TIMES A DAY
     Route: 065

REACTIONS (3)
  - Drug ineffective for unapproved indication [Unknown]
  - Off label use [Unknown]
  - Gastrointestinal disorder [Unknown]
